FAERS Safety Report 6941067-6 (Version None)
Quarter: 2010Q3

REPORT INFORMATION
  Report Type: 
  Country: None (occurrence: None)
  Receive Date: 20100824
  Receipt Date: 20100824
  Transmission Date: 20110219
  Serious: Yes (Other)
  Sender: FDA-Public Use
  Company Number: None

PATIENT
  Age: 47 Year
  Sex: Female
  Weight: 52.1637 kg

DRUGS (1)
  1. PRISTIQ [Suspect]
     Indication: DEPRESSION
     Dosage: 50MG 1 X DAY PO
     Route: 048

REACTIONS (3)
  - ALOPECIA [None]
  - THYROID FUNCTION TEST ABNORMAL [None]
  - TRICHORRHEXIS [None]
